FAERS Safety Report 23619000 (Version 1)
Quarter: 2024Q1

REPORT INFORMATION
  Report Type: Report from Study
  Country: BR (occurrence: BR)
  Receive Date: 20240311
  Receipt Date: 20240311
  Transmission Date: 20240409
  Serious: Yes (Hospitalization)
  Sender: FDA-Public Use
  Company Number: BR-ELI_LILLY_AND_COMPANY-BR202310003738

PATIENT
  Age: 73 Year
  Sex: Female

DRUGS (2)
  1. FORTEO [Suspect]
     Active Substance: TERIPARATIDE
     Indication: Osteoporosis
     Dosage: 20 UG, DAILY
     Route: 058
     Dates: start: 20231002
  2. FORTEO [Suspect]
     Active Substance: TERIPARATIDE
     Dosage: 20 UG, DAILY
     Route: 058

REACTIONS (17)
  - Sciatica [Unknown]
  - Gastrointestinal disorder [Unknown]
  - Faeces discoloured [Unknown]
  - Dizziness [Unknown]
  - Pain [Unknown]
  - Paraesthesia [Unknown]
  - Swelling [Unknown]
  - Arthralgia [Unknown]
  - Clumsiness [Unknown]
  - Gluten sensitivity [Recovered/Resolved]
  - Nosocomial infection [Unknown]
  - COVID-19 [Unknown]
  - Spinal disorder [Unknown]
  - Fall [Unknown]
  - Fall [Unknown]
  - Balance disorder [Unknown]
  - COVID-19 [Recovered/Resolved]

NARRATIVE: CASE EVENT DATE: 20231001
